FAERS Safety Report 18663687 (Version 7)
Quarter: 2021Q3

REPORT INFORMATION
  Report Type: Spontaneous
  Country: ES (occurrence: ES)
  Receive Date: 20201224
  Receipt Date: 20210914
  Transmission Date: 20211014
  Serious: Yes (Other)
  Sender: FDA-Public Use
  Company Number: ES-MYLANLABS-2020M1103186

PATIENT
  Age: 54 Year
  Sex: Female

DRUGS (1)
  1. OLMESARTAN MEDOXOMIL MYLAN [Suspect]
     Active Substance: OLMESARTAN MEDOXOMIL
     Indication: HYPERTENSION
     Dosage: 40 MILLIGRAM, QD

REACTIONS (10)
  - Asthenia [Recovered/Resolved]
  - Weight decreased [Recovering/Resolving]
  - Autoimmune hepatitis [Recovered/Resolved]
  - Hepatitis acute [Recovered/Resolved]
  - Hepatic fibrosis [Recovered/Resolved]
  - Antinuclear antibody positive [Recovered/Resolved]
  - Drug-induced liver injury [Recovered/Resolved]
  - Hypertransaminasaemia [Recovered/Resolved]
  - Lymphocytic infiltration [Recovered/Resolved]
  - Hepatic steatosis [Recovered/Resolved]
